FAERS Safety Report 9109940 (Version 3)
Quarter: 2013Q1

REPORT INFORMATION
  Report Type: Spontaneous
  Country: JP (occurrence: JP)
  Receive Date: 20130222
  Receipt Date: 20130307
  Transmission Date: 20140127
  Serious: Yes (Hospitalization)
  Sender: FDA-Public Use
  Company Number: JP-ELI_LILLY_AND_COMPANY-JP201302000023

PATIENT
  Age: 76 Year
  Sex: Female
  Weight: 30 kg

DRUGS (5)
  1. FORTEO [Suspect]
     Dosage: UNK
     Route: 058
     Dates: end: 201302
  2. FORTEO [Suspect]
     Dosage: UNK
     Route: 058
     Dates: start: 201302
  3. MINODRONIC ACID [Concomitant]
     Dosage: UNK
     Dates: end: 20130201
  4. AMLODIPINE                         /00972402/ [Concomitant]
     Indication: HYPERTENSION
  5. MICARDIS [Concomitant]
     Indication: HYPERTENSION

REACTIONS (2)
  - Loss of consciousness [Recovered/Resolved]
  - Blood calcium increased [Recovered/Resolved]
